FAERS Safety Report 6036821-1 (Version None)
Quarter: 2009Q1

REPORT INFORMATION
  Report Type: 
  Country: None (occurrence: None)
  Receive Date: 20090114
  Receipt Date: 20090107
  Transmission Date: 20090719
  Serious: Yes (Disabling, Other)
  Sender: FDA-Public Use
  Company Number: PHEH2009US00614

PATIENT
  Sex: Male

DRUGS (3)
  1. ZOMETA [Suspect]
     Indication: PROSTATE CANCER
     Dosage: 4 MG, QW3
     Route: 042
     Dates: start: 20010701, end: 20041001
  2. DOCETAXEL [Concomitant]
  3. MITOXANTRONE [Concomitant]

REACTIONS (3)
  - BONE DISORDER [None]
  - OSTEONECROSIS [None]
  - PURULENT DISCHARGE [None]
